FAERS Safety Report 9068455 (Version 1)
Quarter: 2013Q1

REPORT INFORMATION
  Report Type: Spontaneous
  Country: US (occurrence: None)
  Receive Date: 20130212
  Receipt Date: 20130212
  Transmission Date: 20140127
  Serious: Yes (Other)
  Sender: FDA-Public Use
  Company Number: None

PATIENT
  Age: 31 Year
  Sex: Female
  Weight: 51.71 kg

DRUGS (1)
  1. DAYQUIL COLD + FLU [Suspect]
     Indication: INFLUENZA
     Route: 048
     Dates: start: 20130206, end: 20130206

REACTIONS (9)
  - Abdominal pain upper [None]
  - Headache [None]
  - Eye movement disorder [None]
  - Vomiting [None]
  - Tunnel vision [None]
  - Consciousness fluctuating [None]
  - Eating disorder [None]
  - Lethargy [None]
  - Nausea [None]
